FAERS Safety Report 7523349-2 (Version None)
Quarter: 2011Q2

REPORT INFORMATION
  Report Type: 
  Country: None (occurrence: None)
  Receive Date: 20110603
  Receipt Date: 20110525
  Transmission Date: 20111010
  Serious: Yes (Hospitalization)
  Sender: FDA-Public Use
  Company Number: A0929936A

PATIENT
  Age: 53 Year
  Sex: Female
  Weight: 50.8 kg

DRUGS (4)
  1. PACLITAXEL [Suspect]
     Dosage: 80MGM2 CYCLIC
     Route: 042
     Dates: start: 20110419
  2. PAZOPANIB [Suspect]
     Dosage: 800MG PER DAY
     Route: 048
     Dates: start: 20110419, end: 20110523
  3. DOXORUBICIN HCL [Suspect]
     Dosage: 60MGM2 CYCLIC
     Route: 042
     Dates: start: 20110119, end: 20110328
  4. CYCLOPHOSPHAMIDE [Suspect]
     Dosage: 600MGM2 CYCLIC
     Route: 042
     Dates: start: 20110119, end: 20110328

REACTIONS (1)
  - PULMONARY EMBOLISM [None]
